FAERS Safety Report 8099548-0 (Version None)
Quarter: 2012Q1

REPORT INFORMATION
  Report Type: 
  Country: None (occurrence: None)
  Receive Date: 20120129
  Receipt Date: 20110927
  Transmission Date: 20120608
  Serious: No
  Sender: FDA-Public Use
  Company Number: US-ABBOTT-11P-163-0858254-00

PATIENT
  Sex: Male

DRUGS (5)
  1. SEROQUEL [Concomitant]
     Indication: MENTAL DISORDER
  2. HUMIRA [Suspect]
     Indication: CROHN'S DISEASE
     Dosage: DAY 1
     Route: 058
     Dates: start: 20110923
  3. SEROQUEL XR [Concomitant]
     Indication: MENTAL DISORDER
     Dosage: ONE DAILY AT BEDTIME
  4. PENTASA [Concomitant]
     Indication: INFLAMMATION
  5. KLONOPIN [Concomitant]
     Indication: MENTAL DISORDER

REACTIONS (2)
  - PRURITUS [None]
  - SKIN MASS [None]
